FAERS Safety Report 7649290-2 (Version None)
Quarter: 2011Q3

REPORT INFORMATION
  Report Type: 
  Country: None (occurrence: None)
  Receive Date: 20110802
  Receipt Date: 20101015
  Transmission Date: 20111222
  Serious: No
  Sender: FDA-Public Use
  Company Number: US-BAYER-201039844NA

PATIENT
  Sex: Female

DRUGS (3)
  1. DIFLUCAN [Concomitant]
  2. METROGEL [Concomitant]
  3. MIRENA [Suspect]
     Dosage: 20 ?G, CONT
     Route: 015

REACTIONS (6)
  - FUNGAL INFECTION [None]
  - MEDICAL DEVICE COMPLICATION [None]
  - VULVOVAGINAL DISCOMFORT [None]
  - VAGINITIS BACTERIAL [None]
  - OVARIAN CYST [None]
  - VULVOVAGINAL PAIN [None]
